FAERS Safety Report 5679797-9 (Version None)
Quarter: 2008Q1

REPORT INFORMATION
  Report Type: 
  Country: None (occurrence: None)
  Receive Date: 20080324
  Receipt Date: 20080314
  Transmission Date: 20080703
  Serious: Yes (Hospitalization)
  Sender: FDA-Public Use
  Company Number: 2008BI004360

PATIENT
  Age: 54 Year
  Sex: Female
  Weight: 52.1637 kg

DRUGS (7)
  1. AVONEX [Suspect]
     Indication: DRUG USE FOR UNKNOWN INDICATION
     Dosage: 30 UG IM
     Route: 030
     Dates: start: 20051207
  2. DITROPAN [Concomitant]
  3. PREDNISONE [Concomitant]
  4. FOSAMAX [Concomitant]
  5. ZOLOFT [Concomitant]
  6. DIAZEPAM [Concomitant]
  7. LISINOPRIL [Concomitant]

REACTIONS (5)
  - INFLUENZA LIKE ILLNESS [None]
  - LOBAR PNEUMONIA [None]
  - MALAISE [None]
  - TACHYPNOEA [None]
  - VIRAL INFECTION [None]
